FAERS Safety Report 6414350-0 (Version None)
Quarter: 2009Q4

REPORT INFORMATION
  Report Type: 
  Country: None (occurrence: None)
  Receive Date: 20091026
  Receipt Date: 20090928
  Transmission Date: 20100525
  Serious: Yes (Hospitalization)
  Sender: FDA-Public Use
  Company Number: MX-ROCHE-663418

PATIENT
  Sex: Male

DRUGS (1)
  1. CAPECITABINE [Suspect]
     Indication: COLON CANCER
     Dosage: DOSE: 500 MG, FREQUENCY: 4 UNITS EACH 12 HOURS DURING 14 DAYS.
     Route: 048
     Dates: start: 20090906, end: 20090920

REACTIONS (4)
  - BLOOD GLUCOSE INCREASED [None]
  - FATIGUE [None]
  - HICCUPS [None]
  - VOMITING [None]
